FAERS Safety Report 11796615 (Version 2)
Quarter: 2016Q1

REPORT INFORMATION
  Report Type: Spontaneous
  Country: TW (occurrence: TW)
  Receive Date: 20151203
  Receipt Date: 20160120
  Transmission Date: 20160525
  Serious: Yes (Hospitalization, Other)
  Sender: FDA-Public Use
  Company Number: TW-GLAXOSMITHKLINE-TW2015GSK170615

PATIENT
  Age: 27 Year
  Sex: Male

DRUGS (3)
  1. EFAVIRENZ [Suspect]
     Active Substance: EFAVIRENZ
     Indication: HIV INFECTION
  2. LAMIVUDINE. [Suspect]
     Active Substance: LAMIVUDINE
     Indication: HIV INFECTION
  3. TENOFOVIR DISOPROXIL FUMARATE. [Suspect]
     Active Substance: TENOFOVIR DISOPROXIL FUMARATE
     Indication: HIV INFECTION

REACTIONS (7)
  - Dyspnoea [Unknown]
  - Cough [Unknown]
  - Rales [Unknown]
  - Pneumocystis jirovecii pneumonia [Unknown]
  - Pyrexia [Unknown]
  - Lung infiltration [Recovered/Resolved]
  - Immune reconstitution inflammatory syndrome [Recovering/Resolving]
